FAERS Safety Report 6534057-9 (Version None)
Quarter: 2010Q1

REPORT INFORMATION
  Report Type: 
  Country: None (occurrence: None)
  Receive Date: 20100112
  Receipt Date: 20100111
  Transmission Date: 20100710
  Serious: Yes (Death)
  Sender: FDA-Public Use
  Company Number: US-ASTRAZENECA-2010SE01224

PATIENT
  Age: 1068 Month
  Sex: Female

DRUGS (5)
  1. SEROQUEL [Suspect]
     Indication: DEPRESSION
     Route: 048
     Dates: start: 20050901, end: 20061101
  2. SEROQUEL [Suspect]
     Indication: ANXIETY
     Route: 048
     Dates: start: 20050901, end: 20061101
  3. SEROQUEL [Suspect]
     Indication: DEMENTIA
     Route: 048
     Dates: start: 20050901, end: 20061101
  4. EFFEXOR [Concomitant]
     Dates: start: 20030101, end: 20060101
  5. LEXAPRO [Concomitant]
     Dates: start: 20050101, end: 20060101

REACTIONS (3)
  - CARDIAC FAILURE CONGESTIVE [None]
  - CARDIO-RESPIRATORY ARREST [None]
  - TYPE 2 DIABETES MELLITUS [None]
